FAERS Safety Report 5519482-7 (Version None)
Quarter: 2007Q4

REPORT INFORMATION
  Report Type: 
  Country: None (occurrence: None)
  Receive Date: 20071114
  Receipt Date: 20071031
  Transmission Date: 20080405
  Serious: Yes (Life-Threatening, Other)
  Sender: FDA-Public Use
  Company Number: 100#03#2007-04560

PATIENT
  Age: 69 Year
  Sex: Female

DRUGS (1)
  1. CITALOPRAM (CITALOPRAM) (CITALOPRAM) [Suspect]
     Indication: DEPRESSION
     Dosage: 10 MG ORAL
     Route: 048
     Dates: start: 20070628, end: 20070727

REACTIONS (2)
  - HEADACHE [None]
  - SUBDURAL HAEMORRHAGE [None]
